FAERS Safety Report 8777065 (Version 2)
Quarter: 2012Q4

REPORT INFORMATION
  Report Type: 
  Country: CA (occurrence: CA)
  Receive Date: 20120911
  Receipt Date: 20120921
  Transmission Date: 20130627
  Serious: Yes (Death)
  Sender: FDA-Public Use
  Company Number: PHHY2012CA078619

PATIENT
  Age: 50 Year
  Sex: Female

DRUGS (2)
  1. ZOMETA [Suspect]
     Indication: NON-SMALL CELL LUNG CANCER
     Dosage: 4 mg, every 3 weeks
     Route: 042
     Dates: start: 20111220
  2. ZOMETA [Suspect]
     Indication: METASTASES TO BONE

REACTIONS (3)
  - Neoplasm progression [Fatal]
  - Malignant neoplasm progression [Fatal]
  - Lung neoplasm malignant [None]
